FAERS Safety Report 4494450-5 (Version None)
Quarter: 2004Q4

REPORT INFORMATION
  Report Type: 
  Country: None (occurrence: None)
  Receive Date: 20041102
  Receipt Date: 20041013
  Transmission Date: 20050328
  Serious: No
  Sender: FDA-Public Use
  Company Number: EWC041040925

PATIENT
  Age: 57 Year
  Sex: Male

DRUGS (5)
  1. ZYPREXA [Suspect]
     Indication: AGITATION
     Dosage: 10 MG
     Dates: start: 20041003, end: 20041003
  2. RISPERDAL [Concomitant]
  3. NORVASC [Concomitant]
  4. BISMORAL [Concomitant]
  5. DISPIRIN (ACETYLSALICYLIC ACID) [Concomitant]

REACTIONS (2)
  - MUSCLE CRAMP [None]
  - RESTLESSNESS [None]
